FAERS Safety Report 20694831 (Version 1)
Quarter: 2022Q2

REPORT INFORMATION
  Report Type: Spontaneous
  Country: US (occurrence: US)
  Receive Date: 20220411
  Receipt Date: 20220411
  Transmission Date: 20220721
  Serious: No
  Sender: FDA-Public Use
  Company Number: US-NOVARTISTESTPH-NVSC2022US057467

PATIENT
  Sex: Female

DRUGS (1)
  1. COMBIPATCH [Suspect]
     Active Substance: ESTRADIOL\NORETHINDRONE ACETATE
     Indication: Product used for unknown indication
     Dosage: UNK MG 0.05/0.14 MG
     Route: 065

REACTIONS (4)
  - Application site pain [Unknown]
  - Application site swelling [Unknown]
  - Application site erythema [Unknown]
  - Application site urticaria [Unknown]
